FAERS Safety Report 25484844 (Version 2)
Quarter: 2025Q4

REPORT INFORMATION
  Report Type: Spontaneous
  Country: JP (occurrence: JP)
  Receive Date: 20250626
  Receipt Date: 20251024
  Transmission Date: 20260118
  Serious: Yes (Hospitalization)
  Sender: AMGEN
  Company Number: JP-AMGEN-JPNSP2025122782

PATIENT

DRUGS (1)
  1. OTEZLA [Suspect]
     Active Substance: APREMILAST
     Indication: Behcet^s syndrome
     Dosage: 30 MILLIGRAM, QD
     Route: 048

REACTIONS (1)
  - Ill-defined disorder [Unknown]
